FAERS Safety Report 14647626 (Version 1)
Quarter: 2018Q1

REPORT INFORMATION
  Report Type: Spontaneous
  Country: US (occurrence: US)
  Receive Date: 20180316
  Receipt Date: 20180316
  Transmission Date: 20180509
  Serious: No
  Sender: FDA-Public Use
  Company Number: US-GLAXOSMITHKLINE-US2018GSK044534

PATIENT
  Age: 68 Year
  Sex: Female

DRUGS (1)
  1. LAMICTAL XR [Suspect]
     Active Substance: LAMOTRIGINE
     Indication: EPILEPSY
     Dosage: UNK
     Route: 048
     Dates: start: 2010

REACTIONS (2)
  - Road traffic accident [Unknown]
  - General symptom [Not Recovered/Not Resolved]

NARRATIVE: CASE EVENT DATE: 20180313
